FAERS Safety Report 4867025-3 (Version None)
Quarter: 2005Q4

REPORT INFORMATION
  Report Type: 
  Country: None (occurrence: None)
  Receive Date: 20051222
  Receipt Date: 20051212
  Transmission Date: 20060501
  Serious: Yes (Other)
  Sender: FDA-Public Use
  Company Number: DE-2005-019102

PATIENT
  Age: 41 Year
  Sex: Female

DRUGS (1)
  1. BETAFERON (INTERFERON BETA- 1B)INJECTION, 250?G [Suspect]
     Dosage: SUBCUTANEOUS
     Route: 058
     Dates: start: 20000101

REACTIONS (3)
  - ANTINUCLEAR ANTIBODY POSITIVE [None]
  - ARTHRALGIA [None]
  - RHEUMATOID FACTOR INCREASED [None]
